FAERS Safety Report 8070845-8 (Version None)
Quarter: 2012Q1

REPORT INFORMATION
  Report Type: 
  Country: None (occurrence: None)
  Receive Date: 20120125
  Receipt Date: 20120110
  Transmission Date: 20120608
  Serious: Yes (Other)
  Sender: FDA-Public Use
  Company Number: ES-GLAXOSMITHKLINE-B0775273A

PATIENT
  Age: 45 Year
  Sex: Male

DRUGS (2)
  1. CARBAMAZEPINE [Concomitant]
     Indication: EPILEPSY
     Dosage: 1200MG PER DAY
     Route: 065
  2. TROBALT [Suspect]
     Indication: EPILEPSY
     Route: 048
     Dates: start: 20111128

REACTIONS (4)
  - EPILEPSY [None]
  - ERECTILE DYSFUNCTION [None]
  - PRURITUS [None]
  - DRUG INEFFECTIVE [None]
